FAERS Safety Report 25088990 (Version 5)
Quarter: 2025Q2

REPORT INFORMATION
  Report Type: Spontaneous
  Country: US (occurrence: US)
  Receive Date: 20250318
  Receipt Date: 20250506
  Transmission Date: 20250717
  Serious: No
  Sender: PFIZER
  Company Number: US-PFIZER INC-202500055651

PATIENT
  Sex: Female

DRUGS (1)
  1. ESTRING [Suspect]
     Active Substance: ESTRADIOL
     Dosage: EVERY 3 MONTHS

REACTIONS (2)
  - Vulvovaginal discomfort [Not Recovered/Not Resolved]
  - Device use issue [Not Recovered/Not Resolved]
